FAERS Safety Report 5403809-0 (Version None)
Quarter: 2007Q3

REPORT INFORMATION
  Report Type: 
  Country: None (occurrence: None)
  Receive Date: 20070731
  Receipt Date: 20070731
  Transmission Date: 20080115
  Serious: Yes (Hospitalization)
  Sender: FDA-Public Use
  Company Number: None

PATIENT
  Age: 55 Year
  Sex: Male
  Weight: 74.8435 kg

DRUGS (1)
  1. CLARITHROMYCIN [Suspect]
     Indication: CELLULITIS
     Dosage: 500MG TWICE DAILY
     Dates: start: 20070712, end: 20070717

REACTIONS (3)
  - APHASIA [None]
  - DISORIENTATION [None]
  - GRAND MAL CONVULSION [None]
